FAERS Safety Report 6409086-6 (Version None)
Quarter: 2009Q4

REPORT INFORMATION
  Report Type: 
  Country: None (occurrence: None)
  Receive Date: 20091021
  Receipt Date: 20091012
  Transmission Date: 20100525
  Serious: Yes (Hospitalization)
  Sender: FDA-Public Use
  Company Number: DE-TEVA-212173ISR

PATIENT
  Sex: Female

DRUGS (4)
  1. CYCLOSPORINE [Suspect]
     Indication: RENAL TRANSPLANT
     Route: 048
     Dates: start: 20060816
  2. MYCOPHENOLIC ACID [Suspect]
     Indication: RENAL TRANSPLANT
     Dates: start: 20060816
  3. PREDNISOLONE [Suspect]
     Indication: RENAL TRANSPLANT
     Dates: start: 20060816
  4. METOPROLOL [Concomitant]
     Dates: start: 20060819

REACTIONS (1)
  - CYTOMEGALOVIRUS COLITIS [None]
